FAERS Safety Report 7755256-4 (Version None)
Quarter: 2011Q3

REPORT INFORMATION
  Report Type: 
  Country: None (occurrence: None)
  Receive Date: 20110914
  Receipt Date: 20110901
  Transmission Date: 20111222
  Serious: Yes (Life-Threatening, Other)
  Sender: FDA-Public Use
  Company Number: 2011-3609

PATIENT
  Age: 60 Year
  Sex: Male

DRUGS (6)
  1. INSULIN [Concomitant]
  2. SOMATULINE DEPOT [Suspect]
     Indication: ACROMEGALY
     Dosage: 60MG (60 MG, ONCE), SUBCUTANEOUS
     Route: 058
     Dates: start: 20110816, end: 20110816
  3. SIMVASTATIN [Concomitant]
  4. CABERGOLINE [Concomitant]
  5. NIFEDIPINE [Concomitant]
  6. IRBESARTAN [Concomitant]

REACTIONS (4)
  - HYPOGLYCAEMIA [None]
  - PALPITATIONS [None]
  - BRADYCARDIA [None]
  - TACHYCARDIA [None]
